FAERS Safety Report 6276663-5 (Version None)
Quarter: 2009Q3

REPORT INFORMATION
  Report Type: 
  Country: None (occurrence: None)
  Receive Date: 20090722
  Receipt Date: 20080707
  Transmission Date: 20100115
  Serious: No
  Sender: FDA-Public Use
  Company Number: US-BRISTOL-MYERS SQUIBB COMPANY-14252662

PATIENT
  Age: 70 Year
  Sex: Male
  Weight: 59 kg

DRUGS (3)
  1. COUMADIN [Suspect]
     Indication: ATRIAL FIBRILLATION
     Dates: start: 20080516, end: 20080620
  2. METOPROLOL SUCCINATE [Concomitant]
  3. BENAZEPRIL HYDROCHLORIDE [Concomitant]

REACTIONS (3)
  - CHILLS [None]
  - FEELING ABNORMAL [None]
  - TEMPERATURE INTOLERANCE [None]
